FAERS Safety Report 10038315 (Version 1)
Quarter: 2014Q1

REPORT INFORMATION
  Report Type: Spontaneous
  Country: US (occurrence: None)
  Receive Date: 20140306
  Receipt Date: 20140306
  Transmission Date: 20141002
  Serious: Yes (Hospitalization)
  Sender: FDA-Public Use
  Company Number: 163-21880-13080369

PATIENT
  Age: 65 Year
  Sex: Female
  Weight: 77.6 kg

DRUGS (10)
  1. REVLIMID (LENALIDOMIDE) (25 MILLIGRAM, CAPSULES) [Suspect]
     Indication: PLASMA CELL MYELOMA
     Dosage: 25 MG, 14 IN 14 D, PO  05/20/2013 - ONGOING THERAPY DATES
     Route: 048
     Dates: start: 20130520
  2. VELCADE (BORTEZOMIB) (UNKNOWN) [Suspect]
     Indication: PLASMA CELL MYELOMA
     Dosage: UNK  UNKNOWN - STOPPED THERAPY DATES
  3. ACYCLOVIR (ACICLOVIR) (UNKNOWN) [Concomitant]
  4. DEXAMETHASONE (DEXAMETHASONE) (UNKNOWN) [Concomitant]
  5. ESTRADIOL (ESTRADIOL) (UNKNOWN) [Concomitant]
  6. FLUCONAZOLE (FLUCONAZOLE) (UNKNOWN) [Concomitant]
  7. LORAZEPAM (LORAZEPAM) [Concomitant]
  8. NEXIUM (ESOMEPRAZOLE) [Concomitant]
  9. ONDANSETRON (ONDANSETRON) [Concomitant]
  10. PROCHLORPERAZINE (PROCHLOPERAZINE) [Concomitant]

REACTIONS (1)
  - Orthostatic hypotension [None]
